FAERS Safety Report 12279899 (Version 1)
Quarter: 2016Q2

REPORT INFORMATION
  Report Type: Spontaneous
  Country: US (occurrence: US)
  Receive Date: 20160418
  Receipt Date: 20160418
  Transmission Date: 20160815
  Serious: Yes (Other)
  Sender: FDA-Public Use
  Company Number: US-TEVA-651941USA

PATIENT
  Age: 10 Month
  Sex: Male

DRUGS (2)
  1. METHYLPREDNISOLONE. [Suspect]
     Active Substance: METHYLPREDNISOLONE
     Indication: PARAPLEGIA
     Dosage: 5.4 MG/KG/D CONTINUOUS IV INFUSION FOR 23 HOURS
     Route: 041
  2. METHYLPREDNISOLONE. [Suspect]
     Active Substance: METHYLPREDNISOLONE
     Indication: PARAPLEGIA
     Dosage: 30 MG/KG
     Route: 040

REACTIONS (1)
  - Gastrointestinal haemorrhage [Unknown]
